FAERS Safety Report 18632304 (Version 2)
Quarter: 2021Q1

REPORT INFORMATION
  Report Type: Report from Study
  Country: TR (occurrence: TR)
  Receive Date: 20201218
  Receipt Date: 20210106
  Transmission Date: 20210419
  Serious: Yes (Death)
  Sender: FDA-Public Use
  Company Number: TR-ROCHE-2732419

PATIENT
  Age: 60 Year
  Sex: Female
  Weight: 46.2 kg

DRUGS (5)
  1. ISOTONIC SODIUM CHLORIDE SOLUTION [Concomitant]
     Active Substance: SODIUM CHLORIDE
     Indication: ASTHENIA
     Route: 042
     Dates: start: 20201204, end: 20201204
  2. PLACEBO [Suspect]
     Active Substance: UNSPECIFIED INGREDIENT
     Indication: NON-SMALL CELL LUNG CANCER
     Dosage: ON DAY 1 OF EACH 21?DAY CYCLE?DATE OF MOST RECENT DOSE OF MTIG 7192A PRIOR TO EVENT ONSET: 12/DEC/20
     Route: 042
     Dates: start: 20201204
  3. PAROL [Concomitant]
     Active Substance: ACETAMINOPHEN
     Indication: ASTHENIA
     Route: 042
     Dates: start: 20201204, end: 20201204
  4. ATEZOLIZUMAB. [Suspect]
     Active Substance: ATEZOLIZUMAB
     Indication: NON-SMALL CELL LUNG CANCER
     Dosage: ON DAY 1 OF EACH 21?DAY CYCLE?DATE OF MOST RECENT DOSE OF ATEZOLIZUMAB (1200 MG) PRIOR TO EVENT ONSE
     Route: 041
     Dates: start: 20201204
  5. CONTRAMAL [Concomitant]
     Active Substance: TRAMADOL HYDROCHLORIDE
     Indication: PAIN
     Route: 048
     Dates: start: 202011

REACTIONS (1)
  - Death [Fatal]

NARRATIVE: CASE EVENT DATE: 20201212
